FAERS Safety Report 4898056-5 (Version None)
Quarter: 2006Q1

REPORT INFORMATION
  Report Type: 
  Country: None (occurrence: None)
  Receive Date: 20060201
  Receipt Date: 20050921
  Transmission Date: 20060701
  Serious: Yes (Hospitalization, Other)
  Sender: FDA-Public Use
  Company Number: US-BRISTOL-MYERS SQUIBB COMPANY-13118583

PATIENT
  Age: 71 Year
  Sex: Male

DRUGS (4)
  1. CETUXIMAB [Suspect]
     Indication: COLORECTAL CANCER METASTATIC
     Route: 042
     Dates: start: 20050916, end: 20050916
  2. IRINOTECAN HCL [Suspect]
     Indication: COLORECTAL CANCER METASTATIC
     Route: 042
     Dates: start: 20050916, end: 20050916
  3. ALOXI [Concomitant]
     Indication: PREMEDICATION
     Dates: start: 20050916, end: 20050916
  4. DECADRON [Concomitant]
     Indication: PREMEDICATION
     Dates: start: 20050916, end: 20050916

REACTIONS (26)
  - ABDOMINAL PAIN LOWER [None]
  - ANAEMIA [None]
  - ASTHENIA [None]
  - ATRIAL FIBRILLATION [None]
  - BLOOD PRESSURE DECREASED [None]
  - BODY TEMPERATURE DECREASED [None]
  - CLOSTRIDIUM COLITIS [None]
  - CULTURE URINE POSITIVE [None]
  - DEHYDRATION [None]
  - DIARRHOEA [None]
  - DIZZINESS [None]
  - ENTEROCOCCAL INFECTION [None]
  - GRANULOCYTE COUNT DECREASED [None]
  - HALLUCINATION [None]
  - HYPERKALAEMIA [None]
  - HYPOVOLAEMIA [None]
  - LEUKOPENIA [None]
  - LYMPHOCYTE COUNT DECREASED [None]
  - MASS [None]
  - NAUSEA [None]
  - NEUTROPENIA [None]
  - PSEUDOMONAS INFECTION [None]
  - RED CELL DISTRIBUTION WIDTH INCREASED [None]
  - THROMBOCYTOPENIA [None]
  - VOMITING [None]
  - WHITE BLOOD CELL COUNT DECREASED [None]
